FAERS Safety Report 6748376-4 (Version None)
Quarter: 2010Q2

REPORT INFORMATION
  Report Type: 
  Country: None (occurrence: None)
  Receive Date: 20100601
  Receipt Date: 20100520
  Transmission Date: 20101027
  Serious: No
  Sender: FDA-Public Use
  Company Number: 2009BI038120

PATIENT
  Age: 34 Year
  Sex: Female

DRUGS (2)
  1. TYSABRI [Suspect]
     Indication: MULTIPLE SCLEROSIS
     Route: 042
     Dates: start: 20090123
  2. COPAXONE [Concomitant]
     Indication: MULTIPLE SCLEROSIS
     Dates: start: 20080201

REACTIONS (7)
  - ARTHRALGIA [None]
  - CHILLS [None]
  - GAIT DISTURBANCE [None]
  - MUSCULAR WEAKNESS [None]
  - PERIPHERAL COLDNESS [None]
  - TREMOR [None]
  - VEIN DISORDER [None]
